FAERS Safety Report 14585976 (Version 2)
Quarter: 2018Q1

REPORT INFORMATION
  Report Type: Spontaneous
  Country: US (occurrence: US)
  Receive Date: 20180301
  Receipt Date: 20180319
  Transmission Date: 20180509
  Serious: No
  Sender: FDA-Public Use
  Company Number: US-JNJFOC-20180215163

PATIENT
  Sex: Female

DRUGS (1)
  1. DURAGESIC [Suspect]
     Active Substance: FENTANYL
     Indication: PRODUCT USED FOR UNKNOWN INDICATION
     Route: 062

REACTIONS (5)
  - Malaise [Unknown]
  - Anxiety [Not Recovered/Not Resolved]
  - Influenza [Unknown]
  - Withdrawal syndrome [Not Recovered/Not Resolved]
  - Drug dose omission [Unknown]
